FAERS Safety Report 24204240 (Version 1)
Quarter: 2024Q3

REPORT INFORMATION
  Report Type: Spontaneous
  Country: FR (occurrence: FR)
  Receive Date: 20240813
  Receipt Date: 20240813
  Transmission Date: 20241016
  Serious: Yes (Hospitalization)
  Sender: JOHNSON AND JOHNSON
  Company Number: None

PATIENT
  Age: 96 Year
  Sex: Female
  Weight: 87 kg

DRUGS (5)
  1. TRAMADOL HYDROCHLORIDE [Suspect]
     Active Substance: TRAMADOL HYDROCHLORIDE
     Indication: Analgesic intervention supportive therapy
     Dosage: 1 DOSAGE FORM
     Route: 042
     Dates: start: 20240720, end: 20240720
  2. TOBREX [Suspect]
     Active Substance: TOBRAMYCIN
     Indication: Conjunctivitis
     Dosage: 1 DOSAGE FORM, EVERY 8 HRS
     Dates: start: 20240723, end: 20240724
  3. AUGMENTIN [Suspect]
     Active Substance: AMOXICILLIN\CLAVULANATE POTASSIUM
     Indication: Infection prophylaxis
     Dosage: 2 GRAM
     Route: 042
     Dates: start: 20240720, end: 20240720
  4. SUFENTANIL [Suspect]
     Active Substance: SUFENTANIL
     Indication: Perioperative analgesia
     Dosage: 1 DOSAGE FORM
     Route: 042
     Dates: start: 20240720, end: 20240720
  5. ACETAMINOPHEN [Suspect]
     Active Substance: ACETAMINOPHEN
     Indication: Analgesic intervention supportive therapy
     Dosage: 1 DOSAGE FORM
     Route: 042
     Dates: start: 20240720, end: 20240720

REACTIONS (1)
  - Rash pruritic [Recovering/Resolving]

NARRATIVE: CASE EVENT DATE: 20240724
